FAERS Safety Report 23380925 (Version 1)
Quarter: 2024Q1

REPORT INFORMATION
  Report Type: Spontaneous
  Country: US (occurrence: US)
  Receive Date: 20240109
  Receipt Date: 20240109
  Transmission Date: 20240410
  Serious: No
  Sender: FDA-Public Use
  Company Number: US-GLENMARK PHARMACEUTICALS-2023GMK085470

PATIENT

DRUGS (1)
  1. AZELAIC ACID [Suspect]
     Active Substance: AZELAIC ACID
     Indication: Acne
     Dosage: UNK UNK, BID
     Route: 065

REACTIONS (6)
  - Poor quality product administered [Unknown]
  - Product use in unapproved indication [Unknown]
  - Application site pain [Unknown]
  - Product physical consistency issue [Unknown]
  - Product quality issue [Unknown]
  - Application site erythema [Unknown]
